FAERS Safety Report 15184653 (Version 1)
Quarter: 2018Q3

REPORT INFORMATION
  Report Type: Spontaneous
  Country: US (occurrence: US)
  Receive Date: 20180723
  Receipt Date: 20180723
  Transmission Date: 20181010
  Serious: No
  Sender: FDA-Public Use
  Company Number: US-AMGEN-USASP2018087640

PATIENT
  Sex: Female

DRUGS (1)
  1. REPATHA [Suspect]
     Active Substance: EVOLOCUMAB
     Indication: PRODUCT USED FOR UNKNOWN INDICATION
     Dosage: UNK
     Route: 065
     Dates: start: 20180609

REACTIONS (7)
  - Influenza like illness [Unknown]
  - Pain [Unknown]
  - Adverse reaction [Unknown]
  - Vomiting [Unknown]
  - Depression [Unknown]
  - Headache [Unknown]
  - Papule [Unknown]

NARRATIVE: CASE EVENT DATE: 20180609
